FAERS Safety Report 4594933-3 (Version None)
Quarter: 2005Q1

REPORT INFORMATION
  Report Type: 
  Country: None (occurrence: None)
  Receive Date: 20050301
  Receipt Date: 20041206
  Transmission Date: 20050727
  Serious: Yes (Other)
  Sender: FDA-Public Use
  Company Number: PHEH2004US13117

PATIENT
  Sex: Female

DRUGS (4)
  1. RESTYLANE [Suspect]
     Route: 023
  2. PERLYNE [Suspect]
     Route: 023
  3. ACETYLSALICYLIC ACID [Concomitant]
     Dosage: 81 MG, QD
     Route: 048
  4. ZELNORM [Suspect]

REACTIONS (1)
  - PHLEBOTHROMBOSIS [None]
